FAERS Safety Report 17138255 (Version 1)
Quarter: 2019Q4

REPORT INFORMATION
  Report Type: Spontaneous
  Country: US (occurrence: US)
  Receive Date: 20191119
  Receipt Date: 20191119
  Transmission Date: 20200122
  Serious: Yes (Hospitalization)
  Sender: FDA-Public Use
  Company Number: None

PATIENT
  Age: 62 Year
  Sex: Male
  Weight: 135 kg

DRUGS (1)
  1. SEMAGLUTIDE [Suspect]
     Active Substance: SEMAGLUTIDE
     Indication: DIABETES MELLITUS
     Route: 058
     Dates: start: 20181129, end: 20190813

REACTIONS (8)
  - Staphylococcus test positive [None]
  - Acute kidney injury [None]
  - Hypophagia [None]
  - Hypotension [None]
  - Nausea [None]
  - Vomiting [None]
  - Syncope [None]
  - Diarrhoea [None]

NARRATIVE: CASE EVENT DATE: 20190722
